FAERS Safety Report 5509023-2 (Version None)
Quarter: 2007Q4

REPORT INFORMATION
  Report Type: 
  Country: None (occurrence: None)
  Receive Date: 20071107
  Receipt Date: 20071102
  Transmission Date: 20080405
  Serious: Yes (Hospitalization, Other)
  Sender: FDA-Public Use
  Company Number: JP-BRISTOL-MYERS SQUIBB COMPANY-13956735

PATIENT
  Age: 53 Year
  Sex: Female

DRUGS (7)
  1. PARAPLATIN [Suspect]
     Indication: UTERINE LEIOMYOSARCOMA
     Route: 041
     Dates: start: 20060915, end: 20060928
  2. ADRIAMYCIN PFS [Suspect]
     Indication: UTERINE LEIOMYOSARCOMA
     Route: 042
  3. IFOMIDE [Suspect]
     Indication: UTERINE LEIOMYOSARCOMA
     Dosage: 1.8GM 2/1DAY FROM 14/SEP/2006-27/SEP/2006
     Route: 041
     Dates: start: 20060913, end: 20060928
  4. DROLEPTAN [Suspect]
     Indication: PROPHYLAXIS OF NAUSEA AND VOMITING
     Route: 042
     Dates: start: 20060915, end: 20060915
  5. DORMICUM [Suspect]
     Route: 042
  6. UROMITEXAN [Concomitant]
     Route: 042
     Dates: start: 20070906, end: 20070928
  7. EPIRUBICIN HCL [Concomitant]
     Route: 041
     Dates: start: 20060906, end: 20060926

REACTIONS (5)
  - BONE MARROW FAILURE [None]
  - CHEST PAIN [None]
  - EXTRAPYRAMIDAL DISORDER [None]
  - HYPERVENTILATION [None]
  - VOMITING [None]
